FAERS Safety Report 17263922 (Version 1)
Quarter: 2020Q1

REPORT INFORMATION
  Report Type: Spontaneous
  Country: ES (occurrence: ES)
  Receive Date: 20200113
  Receipt Date: 20200113
  Transmission Date: 20200409
  Serious: Yes (Death, Hospitalization)
  Sender: FDA-Public Use
  Company Number: ES-MYLANLABS-2020M1004838

PATIENT
  Age: 49 Year
  Sex: Female

DRUGS (3)
  1. EUTIROX [Concomitant]
     Active Substance: LEVOTHYROXINE SODIUM
     Indication: HYPOTHYROIDISM
     Dosage: 75 MCG /24 H EN DESAYUNO
     Route: 048
     Dates: start: 20150323, end: 20171030
  2. CROMATONBIC FERRO                  /00023517/ [Concomitant]
     Indication: IRON DEFICIENCY ANAEMIA
     Dosage: 37.5 MILLIGRAM, QD 1 AMP/24 HORAS
     Route: 048
     Dates: start: 20140512, end: 20171030
  3. AMCHAFIBRIN 500 MG COMPRIMIDOS, ?CIDO TRANEX?MICO [Suspect]
     Active Substance: TRANEXAMIC ACID
     Indication: MENORRHAGIA
     Dosage: 9 COMP. CADA 28 D?AS
     Route: 048
     Dates: start: 20150624, end: 20171030

REACTIONS (1)
  - Acute myocardial infarction [Fatal]

NARRATIVE: CASE EVENT DATE: 20171030
